FAERS Safety Report 23415631 (Version 3)
Quarter: 2024Q1

REPORT INFORMATION
  Report Type: Spontaneous
  Country: PY (occurrence: PY)
  Receive Date: 20240118
  Receipt Date: 20240228
  Transmission Date: 20240410
  Serious: Yes (Hospitalization, Other)
  Sender: FDA-Public Use
  Company Number: PY-BRISTOL-MYERS SQUIBB COMPANY-2023-147600

PATIENT
  Age: 76 Year
  Sex: Female

DRUGS (4)
  1. OPDIVO [Suspect]
     Active Substance: NIVOLUMAB
     Indication: Malignant melanoma stage IV
     Route: 042
     Dates: start: 20230803, end: 20230803
  2. OPDIVO [Suspect]
     Active Substance: NIVOLUMAB
     Dosage: C/15 DAYS
  3. INSULIN NOS [Concomitant]
     Active Substance: INSULIN NOS
     Indication: Product used for unknown indication
     Dosage: 1000 U/ML
     Route: 058
     Dates: start: 202301
  4. ATENOLOL [Concomitant]
     Active Substance: ATENOLOL
     Indication: Product used for unknown indication
     Route: 048
     Dates: start: 2003

REACTIONS (6)
  - Off label use [Unknown]
  - Eczema [Recovered/Resolved]
  - Skin infection [Recovered/Resolved]
  - Enterococcal infection [Unknown]
  - Hypertension [Unknown]
  - Tumour inflammation [Unknown]

NARRATIVE: CASE EVENT DATE: 20230810
